FAERS Safety Report 9239362 (Version 2)
Quarter: 2013Q2

REPORT INFORMATION
  Report Type: Report from Study
  Country: US (occurrence: US)
  Receive Date: 20130418
  Receipt Date: 20130606
  Transmission Date: 20140414
  Serious: Yes (Hospitalization)
  Sender: FDA-Public Use
  Company Number: US-ROCHE-1211861

PATIENT
  Age: 81 Year
  Sex: Male
  Weight: 61.68 kg

DRUGS (19)
  1. CAPECITABINE [Suspect]
     Indication: PANCREATIC CARCINOMA METASTATIC
     Dosage: LAST DOSE PRIOR TO SAE : 08/FEB/2013
     Route: 048
     Dates: start: 20121109
  2. BLINDED RUXOLITINIB [Suspect]
     Indication: PANCREATIC CARCINOMA METASTATIC
     Dosage: LAST DOSE PRIOR TO SAE : 12/FEB/2013
     Route: 048
     Dates: start: 20121109
  3. BLINDED RUXOLITINIB [Suspect]
     Dosage: DOSE INCREASED
     Route: 048
     Dates: start: 20130125
  4. ATENOLOL [Concomitant]
     Route: 065
     Dates: start: 2004
  5. FINASTERIDE [Concomitant]
     Route: 065
     Dates: start: 1990
  6. GLIPIZIDE [Concomitant]
     Route: 065
     Dates: start: 1992
  7. METFORMIN [Concomitant]
     Route: 065
     Dates: start: 1992
  8. NOVOLIN N [Concomitant]
     Route: 065
     Dates: start: 201110
  9. PIOGLITAZONE [Concomitant]
     Route: 065
     Dates: start: 201001
  10. SIMVASTATIN [Concomitant]
     Route: 065
     Dates: start: 201001
  11. TERAZOSIN [Concomitant]
     Route: 065
     Dates: start: 1990
  12. VITAMIN D3 [Concomitant]
     Route: 065
     Dates: start: 2010
  13. SENOKOT-S [Concomitant]
     Route: 065
     Dates: start: 20120309
  14. CREON [Concomitant]
     Route: 065
     Dates: start: 20120309
  15. VICODIN [Concomitant]
     Route: 065
     Dates: start: 20120309
  16. MIRALAX [Concomitant]
     Route: 065
     Dates: start: 201110
  17. LOMOTIL (ATROPINE/DIPHENOXYLATE) [Concomitant]
     Route: 065
     Dates: start: 2012
  18. QUESTRAN [Concomitant]
     Route: 065
     Dates: start: 20121221
  19. PROCRIT [Concomitant]
     Route: 065
     Dates: start: 20120810

REACTIONS (2)
  - Renal failure acute [Recovered/Resolved]
  - Pneumonia [Recovered/Resolved]
